FAERS Safety Report 8455679-4 (Version None)
Quarter: 2012Q2

REPORT INFORMATION
  Report Type: 
  Country: None (occurrence: None)
  Receive Date: 20120621
  Receipt Date: 20120612
  Transmission Date: 20120825
  Serious: Yes (Other)
  Sender: FDA-Public Use
  Company Number: US-JNJFOC-20120606103

PATIENT
  Sex: Female
  Weight: 49.44 kg

DRUGS (9)
  1. AMIODARONE HYDROCHLORIDE [Concomitant]
     Indication: CARDIAC DISORDER
     Route: 048
  2. XARELTO [Suspect]
     Indication: CARDIAC FLUTTER
     Route: 048
     Dates: start: 20120529
  3. BUMETANIDE [Concomitant]
     Indication: CARDIAC DISORDER
     Route: 048
  4. CARVEDILOL [Concomitant]
     Indication: CARDIAC DISORDER
     Route: 048
  5. XARELTO [Suspect]
     Indication: CEREBROVASCULAR ACCIDENT PROPHYLAXIS
     Route: 048
     Dates: start: 20120529
  6. SPIRONOLACTONE [Concomitant]
     Indication: CARDIAC DISORDER
     Route: 048
  7. ASPIRIN [Suspect]
     Indication: CARDIAC DISORDER
     Route: 048
  8. LOSARTAN POTASSIUM [Concomitant]
     Indication: CARDIAC DISORDER
     Route: 048
  9. DIGOXIN [Concomitant]
     Indication: CARDIAC DISORDER
     Route: 048

REACTIONS (5)
  - COAGULATION TIME PROLONGED [None]
  - DIZZINESS [None]
  - BLOOD URINE PRESENT [None]
  - INAPPROPRIATE SCHEDULE OF DRUG ADMINISTRATION [None]
  - EPISTAXIS [None]
